FAERS Safety Report 15809150 (Version 3)
Quarter: 2019Q2

REPORT INFORMATION
  Report Type: Report from Study
  Country: US (occurrence: US)
  Receive Date: 20190110
  Receipt Date: 20190401
  Transmission Date: 20190711
  Serious: Yes (Hospitalization)
  Sender: FDA-Public Use
  Company Number: US-ACTELION-A-NJ2018-177549

PATIENT
  Sex: Female

DRUGS (22)
  1. TRACLEER [Suspect]
     Active Substance: BOSENTAN
     Indication: PULMONARY ARTERIAL HYPERTENSION
     Dosage: 125 MG, BID
     Route: 048
     Dates: start: 20180516
  2. BREO ELLIPTA [Concomitant]
     Active Substance: FLUTICASONE FUROATE\VILANTEROL TRIFENATATE
  3. NORVASC [Concomitant]
     Active Substance: AMLODIPINE BESYLATE
  4. SINGULAIR [Concomitant]
     Active Substance: MONTELUKAST SODIUM
  5. TESSALON [Concomitant]
     Active Substance: BENZONATATE
  6. FLUOXETINE HYDROCHLORIDE. [Concomitant]
     Active Substance: FLUOXETINE HYDROCHLORIDE
  7. COLICINE [Concomitant]
  8. POTASSIUM [Concomitant]
     Active Substance: POTASSIUM
  9. CYCLOBENZAPRINE. [Concomitant]
     Active Substance: CYCLOBENZAPRINE
  10. MONTELUKAST [Concomitant]
     Active Substance: MONTELUKAST SODIUM
  11. VENTOLIN HFA [Concomitant]
     Active Substance: ALBUTEROL SULFATE
  12. ASPIRIN. [Concomitant]
     Active Substance: ASPIRIN
  13. BENZONATATE. [Concomitant]
     Active Substance: BENZONATATE
  14. REVATIO [Concomitant]
     Active Substance: SILDENAFIL CITRATE
  15. ACETAMINOPHEN. [Concomitant]
     Active Substance: ACETAMINOPHEN
  16. LASIX [Concomitant]
     Active Substance: FUROSEMIDE
  17. VITAMIN D2 [Concomitant]
     Active Substance: ERGOCALCIFEROL
  18. SPIRIVA COMBI [Concomitant]
     Active Substance: TIOTROPIUM BROMIDE
  19. AZELASTINE. [Concomitant]
     Active Substance: AZELASTINE HYDROCHLORIDE
  20. AMLODIPINE [Concomitant]
     Active Substance: AMLODIPINE BESYLATE
  21. PROVENTIL [Concomitant]
     Active Substance: ALBUTEROL
  22. PANTOPRAZOLE [Concomitant]
     Active Substance: PANTOPRAZOLE

REACTIONS (3)
  - Hospitalisation [Unknown]
  - Vertigo [Unknown]
  - Hypertension [Unknown]
